FAERS Safety Report 10406349 (Version 1)
Quarter: 2014Q3

REPORT INFORMATION
  Report Type: Report from Study
  Country: AU (occurrence: AU)
  Receive Date: 20140825
  Receipt Date: 20140825
  Transmission Date: 20150326
  Serious: Yes (Other)
  Sender: FDA-Public Use
  Company Number: AU-BAXTER-2014BAX050135

PATIENT
  Age: 44 Year

DRUGS (2)
  1. BAXTER 0.5% METRONIDAZOLE BP INTRAVENOUS INFUSION 500MG_100ML INJECTIO [Suspect]
     Active Substance: METRONIDAZOLE
     Indication: BLASTOCYSTIS INFECTION
     Route: 065
  2. BAXTER 0.5% METRONIDAZOLE BP INTRAVENOUS INFUSION 500MG_100ML INJECTIO [Suspect]
     Active Substance: METRONIDAZOLE
     Indication: OFF LABEL USE

REACTIONS (1)
  - Treatment failure [Not Recovered/Not Resolved]
